FAERS Safety Report 6642827-1 (Version None)
Quarter: 2010Q1

REPORT INFORMATION
  Report Type: 
  Country: None (occurrence: None)
  Receive Date: 20100319
  Receipt Date: 20100310
  Transmission Date: 20100710
  Serious: Yes (Hospitalization)
  Sender: FDA-Public Use
  Company Number: US-ELI_LILLY_AND_COMPANY-US200904006997

PATIENT
  Sex: Male
  Weight: 139.23 kg

DRUGS (5)
  1. BYETTA [Suspect]
     Dosage: UNK, UNKNOWN
     Route: 058
     Dates: start: 20061201, end: 20090201
  2. METFORMIN [Concomitant]
     Dosage: UNK, UNKNOWN
     Route: 065
  3. ZETIA [Concomitant]
     Indication: BLOOD CHOLESTEROL
     Dates: start: 20091101
  4. PAXIL [Concomitant]
     Indication: NEUROPATHY PERIPHERAL
     Dates: start: 20090401
  5. LUNESTA [Concomitant]
     Dates: start: 20070101

REACTIONS (2)
  - PANCREATITIS [None]
  - RENAL FAILURE ACUTE [None]
